FAERS Safety Report 4298453-5 (Version None)
Quarter: 2004Q1

REPORT INFORMATION
  Report Type: 
  Country: None (occurrence: None)
  Receive Date: 20040218
  Receipt Date: 20030730
  Transmission Date: 20041129
  Serious: Yes (Other)
  Sender: FDA-Public Use
  Company Number: US-BRISTOL-MYERS SQUIBB COMPANY-12350500

PATIENT
  Age: 27 Year
  Sex: Female

DRUGS (4)
  1. STADOL [Suspect]
     Indication: MIGRAINE
     Route: 045
     Dates: start: 19990101, end: 20010101
  2. CARBATROL [Concomitant]
  3. AMBIEN [Concomitant]
  4. TRAZODONE HCL [Concomitant]

REACTIONS (2)
  - DEPENDENCE [None]
  - DEPRESSION [None]
